FAERS Safety Report 12205751 (Version 1)
Quarter: 2016Q1

REPORT INFORMATION
  Report Type: Other
  Country: GB (occurrence: GB)
  Receive Date: 20160323
  Receipt Date: 20160323
  Transmission Date: 20160526
  Serious: Yes (Disabling)
  Sender: FDA-Public Use
  Company Number: GB-MYLANLABS-2016M1011655

PATIENT

DRUGS (7)
  1. CALCIUM CARBONATE. [Concomitant]
     Active Substance: CALCIUM CARBONATE
     Dosage: UNK
  2. OMEPRAZOLE. [Concomitant]
     Active Substance: OMEPRAZOLE
     Dosage: UNK
  3. BISOPROLOL [Concomitant]
     Active Substance: BISOPROLOL
     Dosage: UNK
  4. SEVELAMER [Concomitant]
     Active Substance: SEVELAMER
     Dosage: UNK
  5. PREDNISOLONE. [Concomitant]
     Active Substance: PREDNISOLONE
     Dosage: UNK
  6. MYCOPHENOLATE MOFETIL. [Suspect]
     Active Substance: MYCOPHENOLATE MOFETIL
     Indication: ANTI-NEUTROPHIL CYTOPLASMIC ANTIBODY POSITIVE VASCULITIS
     Dosage: HAD BEEN TITRATED UP TO 1G TWICE A DAY
     Route: 048
     Dates: start: 20150930, end: 20160217
  7. ALFACALCIDOL W/ASCORBIC ACID/CALCIUM CITRATE [Concomitant]
     Dosage: UNK

REACTIONS (7)
  - Gastrointestinal mucosa hyperaemia [Unknown]
  - Large intestinal ulcer [Unknown]
  - Rectal haemorrhage [Unknown]
  - Anorectal disorder [Unknown]
  - Haemorrhoids [Unknown]
  - Diverticulum [Recovered/Resolved with Sequelae]
  - Diarrhoea [Unknown]

NARRATIVE: CASE EVENT DATE: 20160215
